FAERS Safety Report 14474314 (Version 1)
Quarter: 2018Q1

REPORT INFORMATION
  Report Type: Spontaneous
  Country: US (occurrence: US)
  Receive Date: 20180131
  Receipt Date: 20180131
  Transmission Date: 20180509
  Serious: Yes (Life-Threatening, Hospitalization)
  Sender: FDA-Public Use
  Company Number: None

PATIENT
  Age: 54 Year
  Sex: Male
  Weight: 78 kg

DRUGS (2)
  1. DOXORUBICIN [Suspect]
     Active Substance: DOXORUBICIN
     Dates: start: 20171114, end: 20171122
  2. BRENTUXIMAB [Suspect]
     Active Substance: BRENTUXIMAB VEDOTIN
     Indication: HODGKIN^S DISEASE
     Dates: start: 20171114, end: 20171122

REACTIONS (5)
  - Pancytopenia [None]
  - Diarrhoea [None]
  - Pulmonary congestion [None]
  - Coronavirus test positive [None]
  - HIV test positive [None]

NARRATIVE: CASE EVENT DATE: 20171122
